FAERS Safety Report 6191166-4 (Version None)
Quarter: 2009Q2

REPORT INFORMATION
  Report Type: 
  Country: None (occurrence: None)
  Receive Date: 20090515
  Receipt Date: 20090413
  Transmission Date: 20091009
  Serious: Yes (Hospitalization, Other)
  Sender: FDA-Public Use
  Company Number: US-JNJFOC-20090200412

PATIENT
  Sex: Female
  Weight: 83.6 kg

DRUGS (46)
  1. CISAPRIDE [Suspect]
     Indication: IMPAIRED GASTRIC EMPTYING
     Route: 048
  2. CISAPRIDE [Suspect]
     Indication: GASTROOESOPHAGEAL REFLUX DISEASE
     Route: 048
  3. DEMEROL [Concomitant]
     Route: 042
  4. DEMEROL [Concomitant]
     Dosage: EVERY 3 HOURS
     Route: 042
  5. DEMEROL [Concomitant]
     Indication: ABDOMINAL PAIN
     Dosage: 2-4 HOURS AS NECESSARY
     Route: 042
  6. VYTORIN [Concomitant]
     Indication: HYPERCHOLESTEROLAEMIA
     Route: 048
  7. AMBIEN [Concomitant]
     Indication: INSOMNIA
     Route: 048
  8. AMBIEN [Concomitant]
     Indication: ANXIETY
     Dosage: AS NEEDED
     Route: 048
  9. K-DUR [Concomitant]
     Indication: ELECTROLYTE SUBSTITUTION THERAPY
     Route: 048
  10. AMITIZA [Concomitant]
     Indication: CONSTIPATION
     Route: 048
  11. NEXIUM [Concomitant]
     Indication: GASTROOESOPHAGEAL REFLUX DISEASE
     Route: 048
  12. SYNTHROID [Concomitant]
     Indication: HYPOTHYROIDISM
     Route: 048
  13. REGLAN [Concomitant]
     Indication: GASTROOESOPHAGEAL REFLUX DISEASE
     Route: 048
  14. VASOTEC [Concomitant]
     Indication: HYPERTENSION
     Route: 048
  15. KLONOPIN [Concomitant]
     Route: 048
  16. KLONOPIN [Concomitant]
     Indication: TREMOR
     Route: 048
  17. LAMICTAL [Concomitant]
     Indication: BIPOLAR DISORDER
     Route: 048
  18. ALLEGRA D 24 HOUR [Concomitant]
     Indication: MULTIPLE ALLERGIES
     Route: 048
  19. GRIFULVIN [Concomitant]
     Indication: FUNGAL INFECTION
     Route: 048
  20. DEMEROL [Concomitant]
     Route: 065
  21. DEMEROL [Concomitant]
     Route: 065
  22. DEMEROL [Concomitant]
     Indication: PAIN
     Route: 065
  23. PHENERGAN [Concomitant]
     Route: 065
  24. PHENERGAN [Concomitant]
     Indication: ABDOMINAL PAIN
     Route: 065
  25. PHENERGAN [Concomitant]
     Indication: NAUSEA
     Route: 065
  26. STADOL [Concomitant]
     Route: 065
  27. STADOL [Concomitant]
     Route: 065
  28. STADOL [Concomitant]
     Route: 065
  29. STADOL [Concomitant]
     Indication: ABDOMINAL PAIN
     Route: 065
  30. STADOL [Concomitant]
     Indication: PAIN
     Route: 065
  31. ZOFRAN [Concomitant]
     Dosage: EVERY 6 HRS
     Route: 042
  32. ZOFRAN [Concomitant]
     Route: 042
  33. ZOFRAN [Concomitant]
     Route: 042
  34. ZOFRAN [Concomitant]
     Dosage: EVERY 4-6 HOURS
     Route: 042
  35. ZOFRAN [Concomitant]
     Route: 042
  36. ZOFRAN [Concomitant]
     Route: 042
  37. ZOFRAN [Concomitant]
     Indication: NAUSEA
     Route: 042
  38. ZOFRAN [Concomitant]
     Route: 048
  39. ZOFRAN [Concomitant]
     Route: 048
  40. ZOFRAN [Concomitant]
     Route: 048
  41. ROCEPHIN [Concomitant]
     Indication: OROPHARYNGEAL PAIN
     Route: 065
  42. ROCEPHIN [Concomitant]
     Indication: PYREXIA
     Route: 065
  43. TALWIN [Concomitant]
     Route: 065
  44. TALWIN [Concomitant]
     Indication: ABDOMINAL PAIN
     Route: 065
  45. CYMBALTA [Concomitant]
     Route: 048
  46. NORVASC [Concomitant]
     Route: 065

REACTIONS (12)
  - ABDOMINAL PAIN [None]
  - ABDOMINAL PAIN UPPER [None]
  - ANXIETY [None]
  - ASTHENIA [None]
  - BACK PAIN [None]
  - CHEST PAIN [None]
  - DYSPNOEA [None]
  - HYPOTENSION [None]
  - IMPAIRED GASTRIC EMPTYING [None]
  - OVERDOSE [None]
  - RESPIRATORY FAILURE [None]
  - SUICIDE ATTEMPT [None]
